FAERS Safety Report 5700400-3 (Version None)
Quarter: 2008Q2

REPORT INFORMATION
  Report Type: 
  Country: None (occurrence: None)
  Receive Date: 20080410
  Receipt Date: 20080328
  Transmission Date: 20081010
  Serious: Yes (Other)
  Sender: FDA-Public Use
  Company Number: US-PFIZER INC-2008027976

PATIENT
  Sex: Female
  Weight: 66.7 kg

DRUGS (9)
  1. LYRICA [Suspect]
     Indication: FIBROMYALGIA
     Route: 048
  2. FUROSEMIDE [Suspect]
     Dates: start: 20080211
  3. XANAX [Concomitant]
  4. LISINOPRIL [Concomitant]
     Indication: HYPERTENSION
  5. VICODIN [Concomitant]
     Indication: BACK PAIN
  6. CYCLOBENZAPRINE HCL [Concomitant]
     Indication: BACK DISORDER
  7. TYLENOL (CAPLET) [Concomitant]
     Indication: MIGRAINE
  8. TYLENOL (CAPLET) [Concomitant]
     Indication: HEADACHE
  9. DOXYLAMINE SUCCINATE [Concomitant]
     Indication: SLEEP DISORDER

REACTIONS (17)
  - ACCOMMODATION DISORDER [None]
  - ARTHROPATHY [None]
  - BLOOD PRESSURE DECREASED [None]
  - CONDITION AGGRAVATED [None]
  - DEPRESSION [None]
  - DRUG INEFFECTIVE [None]
  - FEELING ABNORMAL [None]
  - FLUID RETENTION [None]
  - HEADACHE [None]
  - INADEQUATE ANALGESIA [None]
  - INSOMNIA [None]
  - MEMORY IMPAIRMENT [None]
  - PAIN [None]
  - PSYCHOMOTOR HYPERACTIVITY [None]
  - ROAD TRAFFIC ACCIDENT [None]
  - VISUAL ACUITY REDUCED [None]
  - WEIGHT DECREASED [None]
